FAERS Safety Report 24631426 (Version 1)
Quarter: 2024Q4

REPORT INFORMATION
  Report Type: Spontaneous
  Country: US (occurrence: US)
  Receive Date: 20241118
  Receipt Date: 20241118
  Transmission Date: 20250115
  Serious: No
  Sender: BIONPHARMA INC.
  Company Number: US-Bion-014289

PATIENT
  Sex: Female

DRUGS (1)
  1. CETIRIZINE [Suspect]
     Active Substance: CETIRIZINE HYDROCHLORIDE
     Indication: Hypersensitivity
     Dosage: 1
     Dates: start: 20241101

REACTIONS (2)
  - Intentional product misuse [Unknown]
  - Expired product administered [Unknown]
